FAERS Safety Report 17959593 (Version 1)
Quarter: 2020Q2

REPORT INFORMATION
  Report Type: Report from Study
  Country: JP (occurrence: JP)
  Receive Date: 20200629
  Receipt Date: 20200629
  Transmission Date: 20200714
  Serious: Yes (Other)
  Sender: FDA-Public Use
  Company Number: JP-PFIZER INC-2019-05311

PATIENT
  Age: 77 Year
  Sex: Male
  Weight: 55.9 kg

DRUGS (4)
  1. BINIMETINIB [Suspect]
     Active Substance: BINIMETINIB
     Indication: MALIGNANT MELANOMA STAGE IV
     Dosage: 90 MG, 1X/DAY
     Route: 048
     Dates: start: 20190304, end: 20190310
  2. BINIMETINIB [Suspect]
     Active Substance: BINIMETINIB
     Dosage: 90 MG, 1X/DAY
     Route: 048
     Dates: start: 20190313, end: 20200313
  3. ENCORAFENIB [Suspect]
     Active Substance: ENCORAFENIB
     Dosage: 450 MG, 1X/DAY
     Route: 048
     Dates: start: 20190313, end: 20200313
  4. ENCORAFENIB [Suspect]
     Active Substance: ENCORAFENIB
     Indication: MALIGNANT MELANOMA STAGE IV
     Dosage: 450 MG, 1X/DAY
     Route: 048
     Dates: start: 20190304, end: 20190309

REACTIONS (4)
  - Vomiting [Unknown]
  - Endocarditis [Recovered/Resolved]
  - Uveitis [Recovered/Resolved]
  - Nausea [Unknown]

NARRATIVE: CASE EVENT DATE: 20190306
